FAERS Safety Report 20009318 (Version 17)
Quarter: 2022Q2

REPORT INFORMATION
  Report Type: Spontaneous
  Country: US (occurrence: US)
  Receive Date: 20211029
  Receipt Date: 20220601
  Transmission Date: 20220721
  Serious: Yes (Other)
  Sender: FDA-Public Use
  Company Number: US-SPECGX-T202102385

PATIENT
  Sex: Female

DRUGS (2)
  1. OXYCODONE [Suspect]
     Active Substance: OXYCODONE
     Indication: Pain
     Dosage: UNK
     Route: 065
  2. FIRDAPSE [Suspect]
     Active Substance: AMIFAMPRIDINE PHOSPHATE
     Indication: Myasthenic syndrome
     Dosage: UNK
     Route: 048
     Dates: start: 201910

REACTIONS (12)
  - Myasthenia gravis [Not Recovered/Not Resolved]
  - Brain injury [Not Recovered/Not Resolved]
  - Tongue disorder [Not Recovered/Not Resolved]
  - Dysgraphia [Unknown]
  - Anorectal disorder [Not Recovered/Not Resolved]
  - Pelvic floor dysfunction [Not Recovered/Not Resolved]
  - Head injury [Unknown]
  - Neck injury [Unknown]
  - Back pain [Not Recovered/Not Resolved]
  - Unevaluable event [Unknown]
  - Balance disorder [Not Recovered/Not Resolved]
  - Migraine [Unknown]
